FAERS Safety Report 12622762 (Version 1)
Quarter: 2016Q3

REPORT INFORMATION
  Report Type: Spontaneous
  Country: CH (occurrence: CH)
  Receive Date: 20160804
  Receipt Date: 20160804
  Transmission Date: 20161109
  Serious: Yes (Hospitalization)
  Sender: FDA-Public Use
  Company Number: CH-TEVA-681353ISR

PATIENT
  Age: 68 Year
  Sex: Male
  Weight: 100 kg

DRUGS (15)
  1. METHIONIN [Concomitant]
     Active Substance: METHIONINE
     Indication: TYPE 2 DIABETES MELLITUS
     Dosage: 1500 MILLIGRAM DAILY;
     Route: 048
     Dates: end: 20160617
  2. REMERON [Concomitant]
     Active Substance: MIRTAZAPINE
     Dosage: 15 MILLIGRAM DAILY;
     Route: 048
     Dates: end: 20160617
  3. DITROPAN [Concomitant]
     Active Substance: OXYBUTYNIN CHLORIDE
     Dosage: 10 MILLIGRAM DAILY;
     Route: 048
     Dates: end: 20160617
  4. DAFALGAN [Concomitant]
     Active Substance: ACETAMINOPHEN
     Route: 048
  5. OSTEOSET-T [Suspect]
     Active Substance: CALCIUM SULFATE\TOBRAMYCIN SULFATE
     Indication: OSTEOMYELITIS
     Dosage: 30 GRAM DAILY;
     Route: 028
     Dates: start: 20160520
  6. LISINOPRIL SPIRIG [Suspect]
     Active Substance: LISINOPRIL
     Indication: HYPERTENSION
     Dosage: 10 MILLIGRAM DAILY;
     Route: 048
     Dates: end: 20160614
  7. BELOC ZOK [Concomitant]
     Active Substance: METOPROLOL SUCCINATE
     Dosage: 100 MILLIGRAM DAILY;
     Route: 048
     Dates: end: 20160617
  8. METFORMIN SPIRIG HC [Concomitant]
     Indication: TYPE 2 DIABETES MELLITUS
     Dosage: 1000 MILLIGRAM DAILY;
     Route: 048
     Dates: end: 20160614
  9. UVAMIN [Suspect]
     Active Substance: NITROFURANTOIN
     Dosage: 100 MILLIGRAM DAILY;
     Route: 048
     Dates: start: 20160603, end: 20160606
  10. PANTOZOL [Suspect]
     Active Substance: PANTOPRAZOLE SODIUM
     Dosage: 20 MILLIGRAM DAILY;
     Route: 048
     Dates: end: 20160614
  11. CEFEPIME [Suspect]
     Active Substance: CEFEPIME HYDROCHLORIDE
     Dosage: 6 GRAM DAILY;
     Route: 041
     Dates: start: 20160513, end: 20160531
  12. LAXOBERON [Concomitant]
     Active Substance: SODIUM PICOSULFATE
     Dosage: DRUG WAS CONTINUED
     Route: 048
  13. QUETIAPINE SANDOZ [Concomitant]
     Active Substance: QUETIAPINE
     Dosage: 25 MILLIGRAM DAILY;
     Route: 048
     Dates: start: 20160521, end: 20160617
  14. CEFEPIME [Suspect]
     Active Substance: CEFEPIME HYDROCHLORIDE
     Indication: OSTEOMYELITIS
     Dosage: 4 GRAM DAILY;
     Route: 041
     Dates: start: 20160601, end: 20160618
  15. XARELTO [Concomitant]
     Active Substance: RIVAROXABAN
     Dosage: 20 MILLIGRAM DAILY;
     Route: 048
     Dates: start: 20160526, end: 20160614

REACTIONS (4)
  - Drug prescribing error [Recovered/Resolved]
  - Toxic encephalopathy [Recovered/Resolved]
  - Acute kidney injury [Recovering/Resolving]
  - Drug level increased [Recovered/Resolved]

NARRATIVE: CASE EVENT DATE: 20160610
